FAERS Safety Report 24391540 (Version 1)
Quarter: 2024Q4

REPORT INFORMATION
  Report Type: Spontaneous
  Country: US (occurrence: None)
  Receive Date: 20241002
  Receipt Date: 20241002
  Transmission Date: 20250115
  Serious: Yes (Hospitalization)
  Sender: Public
  Company Number: None

PATIENT
  Age: 34 Year
  Sex: Female

DRUGS (1)
  1. RINVOQ [Suspect]
     Active Substance: UPADACITINIB
     Indication: Crohn^s disease
     Dosage: OTHER QUANTITY : TAKE 1 TABLET;?FREQUENCY : DAILY;?
     Route: 048
     Dates: start: 20240907

REACTIONS (2)
  - Crohn^s disease [None]
  - Impaired quality of life [None]

NARRATIVE: CASE EVENT DATE: 20240926
